FAERS Safety Report 10948736 (Version 1)
Quarter: 2015Q1

REPORT INFORMATION
  Report Type: Spontaneous
  Country: US (occurrence: None)
  Receive Date: 20150323
  Receipt Date: 20150323
  Transmission Date: 20150721
  Serious: No
  Sender: FDA-Public Use
  Company Number: None

PATIENT
  Age: 85 Year
  Sex: Male
  Weight: 117.48 kg

DRUGS (8)
  1. POTASIUM [Concomitant]
  2. LEVEMIR [Concomitant]
     Active Substance: INSULIN DETEMIR
  3. VIT. D [Concomitant]
  4. BABY ASPIRIN [Concomitant]
     Active Substance: ASPIRIN
  5. LEVAQUIN [Suspect]
     Active Substance: LEVOFLOXACIN
     Indication: UPPER RESPIRATORY TRACT INFECTION
     Dosage: 2 PILLS DAILY TWICE DAILY BY MOUTH
     Route: 048
     Dates: end: 20150129
  6. VICTOZA [Concomitant]
     Active Substance: LIRAGLUTIDE
  7. LASIX [Concomitant]
     Active Substance: FUROSEMIDE
  8. VIT. B12 [Concomitant]

REACTIONS (5)
  - Confusional state [None]
  - Balance disorder [None]
  - Feeling abnormal [None]
  - Thinking abnormal [None]
  - Speech disorder [None]

NARRATIVE: CASE EVENT DATE: 20150123
